FAERS Safety Report 7590630-0 (Version None)
Quarter: 2011Q3

REPORT INFORMATION
  Report Type: 
  Country: None (occurrence: None)
  Receive Date: 20110705
  Receipt Date: 20110629
  Transmission Date: 20111222
  Serious: Yes (Other)
  Sender: FDA-Public Use
  Company Number: CHPA2011US08661

PATIENT
  Sex: Female

DRUGS (3)
  1. NICOTINE [Suspect]
     Indication: SMOKING CESSATION THERAPY
     Dosage: 21 MG, QD
     Route: 062
     Dates: start: 20110623, end: 20110626
  2. DRUG THERAPY NOS [Concomitant]
     Dosage: UNK, UNK
  3. OXYGEN [Concomitant]
     Dosage: UNK, UNK

REACTIONS (1)
  - HAEMOPTYSIS [None]
